FAERS Safety Report 5453454-6 (Version None)
Quarter: 2007Q3

REPORT INFORMATION
  Report Type: 
  Country: None (occurrence: None)
  Receive Date: 20070913
  Receipt Date: 20070904
  Transmission Date: 20080115
  Serious: Yes (Hospitalization)
  Sender: FDA-Public Use
  Company Number: 013130

PATIENT
  Age: 53 Year
  Sex: Male

DRUGS (2)
  1. PRIALT [Suspect]
     Indication: BACK PAIN
     Dosage: UG, ONCE/HOUR, INTRATHECAL
     Route: 037
  2. PRIALT [Suspect]
     Indication: SURGERY
     Dosage: UG, ONCE/HOUR, INTRATHECAL
     Route: 037

REACTIONS (4)
  - AMNESIA [None]
  - DIZZINESS [None]
  - HOSTILITY [None]
  - SENSORY DISTURBANCE [None]
